FAERS Safety Report 15736714 (Version 1)
Quarter: 2018Q4

REPORT INFORMATION
  Report Type: Spontaneous
  Country: ES (occurrence: ES)
  Receive Date: 20181218
  Receipt Date: 20181218
  Transmission Date: 20190205
  Serious: Yes (Life-Threatening, Hospitalization)
  Sender: FDA-Public Use
  Company Number: PHHY2018ES188578

PATIENT
  Age: 88 Year
  Sex: Female

DRUGS (3)
  1. MIRTAZAPINA [Suspect]
     Active Substance: MIRTAZAPINE
     Indication: BIPOLAR DISORDER
     Dosage: 15 MG, QD
     Route: 048
     Dates: start: 2017, end: 20181022
  2. METHOTREXATE. [Suspect]
     Active Substance: METHOTREXATE
     Indication: ARTHROPATHY
     Dosage: 12.5 MG, UNK
     Route: 048
     Dates: start: 20180821, end: 20181022
  3. AMIODARON HYDROCHLORIDE [Suspect]
     Active Substance: AMIODARONE HYDROCHLORIDE
     Indication: ARRHYTHMIA
     Dosage: 200 MG, QD
     Route: 048
     Dates: start: 20180903, end: 20181022

REACTIONS (1)
  - Pancytopenia [Recovered/Resolved]

NARRATIVE: CASE EVENT DATE: 20180917
